FAERS Safety Report 8742176 (Version 2)
Quarter: 2012Q4

REPORT INFORMATION
  Report Type: 
  Country: DE (occurrence: DE)
  Receive Date: 20120824
  Receipt Date: 20120926
  Transmission Date: 20130627
  Serious: Yes (Hospitalization)
  Sender: FDA-Public Use
  Company Number: PHHO2012DE012211

PATIENT
  Age: 72 Year
  Sex: Female
  Weight: 64 kg

DRUGS (7)
  1. EVEROLIMUS [Suspect]
     Indication: BREAST CANCER
     Dosage: 10 mg daily
     Route: 048
     Dates: start: 20120728, end: 20120807
  2. EVEROLIMUS [Suspect]
     Dosage: 5 mg daily
     Route: 048
     Dates: start: 20120808, end: 20120812
  3. EXEMESTANE [Suspect]
     Indication: BREAST CANCER
     Dosage: 25 mg daily
     Dates: start: 20120728, end: 20120812
  4. XYLOCAINE [Concomitant]
     Indication: STOMATITIS
     Dosage: 3Xdie
     Route: 048
     Dates: start: 20120808
  5. ACYCLOVIR [Concomitant]
     Indication: HERPES ZOSTER
     Dosage: 400 mg daily
     Dates: start: 20120720
  6. CALCIUM [Concomitant]
     Indication: PROPHYLAXIS
     Dosage: 1000 mg daily
     Dates: start: 1997
  7. VIGANTOLETTEN [Concomitant]
     Indication: PROPHYLAXIS
     Dosage: 1000 i.e.
     Route: 048
     Dates: start: 1997

REACTIONS (2)
  - Stomatitis [Recovered/Resolved]
  - Hypophagia [Recovered/Resolved]
